FAERS Safety Report 9988023 (Version 1)
Quarter: 2014Q1

REPORT INFORMATION
  Report Type: Spontaneous
  Country: US (occurrence: US)
  Receive Date: 20140307
  Receipt Date: 20140307
  Transmission Date: 20141002
  Serious: Yes (Other)
  Sender: FDA-Public Use
  Company Number: ALCN2014US001454

PATIENT
  Age: 8 Month
  Sex: Female

DRUGS (1)
  1. DORZOLAMIDE [Suspect]
     Indication: INTRAOCULAR PRESSURE INCREASED
     Dosage: UNK, BID
     Route: 047

REACTIONS (1)
  - Drug ineffective [Unknown]
